FAERS Safety Report 7958316 (Version 2)
Quarter: 2012Q4

REPORT INFORMATION
  Report Type: Spontaneous
  Country: US (occurrence: None)
  Receive Date: 20110505
  Receipt Date: 20121107
  Transmission Date: 20130627
  Serious: Yes (Hospitalization, Other)
  Sender: FDA-Public Use
  Company Number: 2011MA004502

PATIENT
  Sex: Male

DRUGS (2)
  1. METOCLOPRAMIDE ORAL SOLUTION USP, EQ. 5 MG BASE/ 5 ML (ALPHARMA) [Suspect]
     Indication: GASTROESOPHAGEAL REFLUX
     Dates: start: 20030602, end: 20030623
  2. ZANTAC [Concomitant]

REACTIONS (10)
  - Tardive dyskinesia [None]
  - Dystonia [None]
  - Akathisia [None]
  - Chorea [None]
  - Restless legs syndrome [None]
  - Parkinson^s disease [None]
  - Extrapyramidal disorder [None]
  - Economic problem [None]
  - Emotional disorder [None]
  - Dyskinesia [None]
